FAERS Safety Report 8231116-X (Version None)
Quarter: 2012Q1

REPORT INFORMATION
  Report Type: 
  Country: None (occurrence: None)
  Receive Date: 20120322
  Receipt Date: 20120322
  Transmission Date: 20120608
  Serious: Yes (Other)
  Sender: FDA-Public Use
  Company Number: None

PATIENT
  Age: 34 Year
  Sex: Female
  Weight: 61.688 kg

DRUGS (4)
  1. HYDROCODONE BITARTRATE AND ACETAMINOPHEN [Suspect]
     Indication: ARTHRALGIA
     Dosage: 1 TABLET
     Route: 048
     Dates: start: 20120315, end: 20120321
  2. HYDROCODONE BITARTRATE AND ACETAMINOPHEN [Suspect]
     Indication: PAIN
     Dosage: 1 TABLET
     Route: 048
     Dates: start: 20120315, end: 20120321
  3. HYDROCODONE BITARTRATE AND ACETAMINOPHEN [Suspect]
     Indication: BACK PAIN
     Dosage: 1 TABLET
     Route: 048
     Dates: start: 20120315, end: 20120321
  4. HYDROCODONE BITARTRATE AND ACETAMINOPHEN [Suspect]
     Indication: MUSCLE SPASMS
     Dosage: 1 TABLET
     Route: 048
     Dates: start: 20120315, end: 20120321

REACTIONS (4)
  - RASH [None]
  - REACTION TO DRUG EXCIPIENTS [None]
  - PRODUCT MEASURED POTENCY ISSUE [None]
  - PRODUCT SUBSTITUTION ISSUE [None]
